FAERS Safety Report 5607308-2 (Version None)
Quarter: 2008Q1

REPORT INFORMATION
  Report Type: 
  Country: None (occurrence: None)
  Receive Date: 20080130
  Receipt Date: 20080122
  Transmission Date: 20080703
  Serious: Yes (Hospitalization)
  Sender: FDA-Public Use
  Company Number: ES-JNJFOC-20080104447

PATIENT
  Age: 57 Year
  Sex: Female
  Weight: 69 kg

DRUGS (17)
  1. INFLIXIMAB [Suspect]
     Route: 042
  2. INFLIXIMAB [Suspect]
     Route: 042
  3. INFLIXIMAB [Suspect]
     Route: 042
  4. INFLIXIMAB [Suspect]
     Indication: RHEUMATOID ARTHRITIS
     Route: 042
  5. URBASON [Concomitant]
  6. INDOMETHACIN [Concomitant]
  7. INDOMETHACIN [Concomitant]
  8. OMEPRAZOLE [Concomitant]
  9. BLOKIUM [Concomitant]
     Indication: HYPERTENSION
  10. METHOTREXATE [Concomitant]
  11. METHOTREXATE [Concomitant]
     Dosage: EVERY 15 DAYS
  12. METHOTREXATE [Concomitant]
  13. METHOTREXATE [Concomitant]
     Indication: RHEUMATOID ARTHRITIS
  14. COZAAR [Concomitant]
  15. FOLIC ACID [Concomitant]
     Dosage: 0.5 TABLET
  16. SPIRONOLACTONE [Concomitant]
     Dosage: 1/2 TABLET
  17. FERROUS SULFATE [Concomitant]
     Dosage: 1 TABLET

REACTIONS (2)
  - TRANSAMINASES INCREASED [None]
  - TUBERCULOSIS [None]
